FAERS Safety Report 5075090-6 (Version None)
Quarter: 2006Q3

REPORT INFORMATION
  Report Type: 
  Country: None (occurrence: None)
  Receive Date: 20060804
  Receipt Date: 20060728
  Transmission Date: 20061208
  Serious: Yes (Other)
  Sender: FDA-Public Use
  Company Number: 2006049697

PATIENT
  Age: 51 Year
  Sex: Male
  Weight: 104.7809 kg

DRUGS (4)
  1. LIPITOR [Suspect]
     Indication: BLOOD CHOLESTEROL INCREASED
     Dosage: 10 MG (10 MG, 1 IN 1 D),
     Dates: start: 20060101, end: 20060101
  2. GLUCOPHAGE [Concomitant]
  3. ENALAPRIL MALEATE [Concomitant]
  4. TYLENOL [Concomitant]

REACTIONS (9)
  - BACK PAIN [None]
  - EXOSTOSIS [None]
  - GAIT DISTURBANCE [None]
  - IMPAIRED WORK ABILITY [None]
  - LIVER DISORDER [None]
  - MUSCLE SPASMS [None]
  - OEDEMA PERIPHERAL [None]
  - PAIN IN EXTREMITY [None]
  - RED BLOOD CELL COUNT ABNORMAL [None]
